FAERS Safety Report 5325368-3 (Version None)
Quarter: 2007Q2

REPORT INFORMATION
  Report Type: 
  Country: None (occurrence: None)
  Receive Date: 20070509
  Receipt Date: 20070423
  Transmission Date: 20071010
  Serious: Yes (Life-Threatening, Hospitalization)
  Sender: FDA-Public Use
  Company Number: 2007RR-07160

PATIENT
  Age: 18 Year
  Sex: Female
  Weight: 52 kg

DRUGS (1)
  1. FUROSEMIDE [Suspect]
     Indication: OEDEMA
     Dosage: 120 MG, QD, ORAL
     Route: 048

REACTIONS (5)
  - BLOOD ELECTROLYTES DECREASED [None]
  - ELECTROCARDIOGRAM NORMAL [None]
  - ENCEPHALOPATHY [None]
  - METABOLIC ALKALOSIS [None]
  - RESPIRATORY FAILURE [None]
